FAERS Safety Report 9650278 (Version 2)
Quarter: 2013Q4

REPORT INFORMATION
  Report Type: Spontaneous
  Country: US (occurrence: US)
  Receive Date: 20131028
  Receipt Date: 20131028
  Transmission Date: 20140711
  Serious: No
  Sender: FDA-Public Use
  Company Number: US-PURDUE-USA-2013-0099062

PATIENT
  Age: 56 Year
  Sex: Male

DRUGS (3)
  1. OXYCONTIN (NDA 22-272) [Suspect]
     Indication: CANCER PAIN
     Dosage: 80 MG, BID
     Route: 048
     Dates: start: 2003, end: 20130208
  2. OXYCONTIN (NDA 22-272) [Suspect]
     Dosage: 40 MG, TID
     Route: 048
     Dates: start: 2003, end: 20130208
  3. MORPHINE SULFATE (SIMILAR TO NDA 19-516) [Suspect]
     Indication: CANCER PAIN
     Dosage: 30 MG, BID
     Route: 048
     Dates: start: 20130209

REACTIONS (6)
  - Pollakiuria [Unknown]
  - Frequent bowel movements [Unknown]
  - Drug withdrawal syndrome [Unknown]
  - Drug effect decreased [Unknown]
  - Inadequate analgesia [Unknown]
  - Feeling of body temperature change [Unknown]
